FAERS Safety Report 4434159-7 (Version None)
Quarter: 2004Q3

REPORT INFORMATION
  Report Type: 
  Country: None (occurrence: None)
  Receive Date: 20040825
  Receipt Date: 20040812
  Transmission Date: 20050211
  Serious: Yes (Disabling)
  Sender: FDA-Public Use
  Company Number: 2004222897DE

PATIENT
  Age: 59 Year
  Sex: Female
  Weight: 49 kg

DRUGS (2)
  1. ADRIBLASTIN CS (DOXORUBICIN HYDROCHLORIDE) SOLUTION, STERILE [Suspect]
     Indication: BREAST CANCER
     Dosage: INTRA-ARTERIAL
     Route: 013
     Dates: end: 20020101
  2. FLUOROURACIL [Concomitant]

REACTIONS (5)
  - ARTERIAL OCCLUSIVE DISEASE [None]
  - ATROPHY [None]
  - CYANOSIS [None]
  - INJECTION SITE NERVE DAMAGE [None]
  - PARESIS [None]
